FAERS Safety Report 25500380 (Version 1)
Quarter: 2025Q2

REPORT INFORMATION
  Report Type: Spontaneous
  Country: US (occurrence: None)
  Receive Date: 20250628
  Receipt Date: 20250628
  Transmission Date: 20250717
  Serious: Yes (Disabling)
  Sender: FDA-CTU
  Company Number: None

PATIENT
  Age: 72 Year
  Sex: Female
  Weight: 69.75 kg

DRUGS (7)
  1. VENLAFAXINE [Suspect]
     Active Substance: VENLAFAXINE HYDROCHLORIDE
     Indication: Depression
     Dosage: OTHER QUANTITY : 1 CAPSULE(S);?FREQUENCY : AT BEDTIME;?
     Dates: start: 19950101, end: 20240515
  2. LISINOPRIL [Concomitant]
     Active Substance: LISINOPRIL
  3. PROGESTERONE [Concomitant]
     Active Substance: PROGESTERONE
  4. VITAMIN D NOS [Concomitant]
     Active Substance: CHOLECALCIFEROL\ERGOCALCIFEROL
  5. COD LIVER OIL [Concomitant]
     Active Substance: COD LIVER OIL
  6. VITAMINS [Concomitant]
     Active Substance: VITAMINS
  7. VITAMIN B12 [Concomitant]
     Active Substance: CYANOCOBALAMIN

REACTIONS (9)
  - Electric shock sensation [None]
  - Dizziness [None]
  - Akathisia [None]
  - Nausea [None]
  - Anxiety [None]
  - Alopecia [None]
  - Retching [None]
  - Insomnia [None]
  - Depressed mood [None]

NARRATIVE: CASE EVENT DATE: 20240515
